FAERS Safety Report 6543186-5 (Version None)
Quarter: 2010Q1

REPORT INFORMATION
  Report Type: 
  Country: None (occurrence: None)
  Receive Date: 20100120
  Receipt Date: 20100111
  Transmission Date: 20100710
  Serious: Yes (Life-Threatening, Hospitalization)
  Sender: FDA-Public Use
  Company Number: FR-PFIZER INC-2010003642

PATIENT
  Age: 73 Year
  Sex: Male

DRUGS (12)
  1. TAHOR [Suspect]
     Dosage: UNK
     Dates: end: 20091024
  2. NEXIUM [Suspect]
     Dosage: UNK
     Route: 048
     Dates: end: 20091026
  3. AMLOR [Concomitant]
  4. TAREG [Concomitant]
  5. EUPRESSYL [Concomitant]
  6. CORTANCYL [Concomitant]
  7. SYMBICORT [Concomitant]
  8. KARDEGIC [Concomitant]
  9. CALCIDIA [Concomitant]
  10. NOVORAPID [Concomitant]
  11. LANTUS [Concomitant]
  12. LASILIX [Concomitant]

REACTIONS (1)
  - AGRANULOCYTOSIS [None]
